FAERS Safety Report 12804006 (Version 1)
Quarter: 2016Q4

REPORT INFORMATION
  Report Type: Spontaneous
  Country: CH (occurrence: CH)
  Receive Date: 20161003
  Receipt Date: 20161003
  Transmission Date: 20170207
  Serious: Yes (Hospitalization)
  Sender: FDA-Public Use
  Company Number: CH-TEVA-696021ISR

PATIENT
  Age: 84 Year
  Sex: Female
  Weight: 46.25 kg

DRUGS (8)
  1. SERESTA [Concomitant]
     Active Substance: OXAZEPAM
     Dosage: 15 MILLIGRAM DAILY; STRENGTH: 15MG, START THERAPY DATE UNKNOWN
     Route: 048
  2. CO-ENATEC [Suspect]
     Active Substance: ENALAPRIL MALEATE\HYDROCHLOROTHIAZIDE
     Dosage: 1 DOSAGE FORMS DAILY; STRENGTH: 12.5MG/ 20MG, START THERAPY DATE UNKNOWN, DOSE: 20/12.5MG
     Route: 048
     Dates: end: 201607
  3. AMLODIPIN-MEPHA [Concomitant]
     Active Substance: AMLODIPINE MESYLATE
     Dosage: 5 MILLIGRAM DAILY; STRENGTH: 6.395MG, START THERAPY DATE UNKNOWN
     Route: 048
  4. EFEXOR 37,5MG TABLETTEN [Suspect]
     Active Substance: VENLAFAXINE HYDROCHLORIDE
     Dosage: 75 MILLIGRAM DAILY;
     Route: 048
     Dates: start: 20160630
  5. ASPIRIC CARDIO [Concomitant]
     Dosage: 100 MILLIGRAM DAILY; STRENGTH: 500MG, START THERAPY DATE UNKNOWN
     Route: 048
  6. RELAXANE [Concomitant]
     Dosage: 3 DOSAGE FORMS DAILY; START THERAPY DATE UNKNOWN
     Route: 048
  7. METFORMIN [Concomitant]
     Active Substance: METFORMIN HYDROCHLORIDE
     Dosage: 1000 MILLIGRAM DAILY; STRENGTH: 500MG, START THERAPY DATE UNKNOWN
     Route: 048
  8. DIAMICRON [Concomitant]
     Active Substance: GLICLAZIDE
     Dosage: 30 MILLIGRAM DAILY; START THERAPY DATE UNKNOWN
     Route: 048

REACTIONS (4)
  - Orthostatic hypotension [Recovered/Resolved]
  - Hyperhidrosis [Recovered/Resolved]
  - Asthenia [Recovered/Resolved]
  - Tremor [Recovered/Resolved]

NARRATIVE: CASE EVENT DATE: 201607
